FAERS Safety Report 25849421 (Version 1)
Quarter: 2025Q3

REPORT INFORMATION
  Report Type: Report from Study
  Country: CA (occurrence: CA)
  Receive Date: 20250925
  Receipt Date: 20250925
  Transmission Date: 20251021
  Serious: Yes (Hospitalization)
  Sender: TAKEDA
  Company Number: CA-TAKEDA-2023TUS108674

PATIENT
  Age: 75 Year
  Sex: Male

DRUGS (5)
  1. VEDOLIZUMAB [Suspect]
     Active Substance: VEDOLIZUMAB
     Indication: Crohn^s disease
  2. VEDOLIZUMAB [Suspect]
     Active Substance: VEDOLIZUMAB
  3. VEDOLIZUMAB [Suspect]
     Active Substance: VEDOLIZUMAB
     Indication: Crohn^s disease
  4. PENTASA [Concomitant]
     Active Substance: MESALAMINE
  5. GLEEVEC [Concomitant]
     Active Substance: IMATINIB MESYLATE
     Indication: Leukaemia

REACTIONS (1)
  - Infection [Unknown]

NARRATIVE: CASE EVENT DATE: 20230901
